FAERS Safety Report 16290838 (Version 1)
Quarter: 2019Q2

REPORT INFORMATION
  Report Type: Spontaneous
  Country: US (occurrence: US)
  Receive Date: 20190509
  Receipt Date: 20190509
  Transmission Date: 20190711
  Serious: Yes (Hospitalization, Other)
  Sender: FDA-Public Use
  Company Number: US-TEVA-2019-US-1045710

PATIENT
  Age: 88 Year
  Sex: Female

DRUGS (13)
  1. ISOSORBIDE MONONITRATE. [Concomitant]
     Active Substance: ISOSORBIDE MONONITRATE
     Indication: VASOCONSTRICTION
  2. OMEPRAZOLE. [Concomitant]
     Active Substance: OMEPRAZOLE
     Indication: GASTRIC DISORDER
  3. TYLENOL [Concomitant]
     Active Substance: ACETAMINOPHEN
     Indication: ARTHRALGIA
  4. PROAIR HFA [Suspect]
     Active Substance: ALBUTEROL SULFATE
     Indication: ASTHMA
     Dosage: 8 DOSAGE FORMS DAILY; 2 PUFFS
     Dates: start: 2018
  5. CITALOPRAM [Concomitant]
     Active Substance: CITALOPRAM HYDROBROMIDE
     Indication: ANXIETY
  6. FLONASE [Concomitant]
     Active Substance: FLUTICASONE PROPIONATE
  7. VITAMIN D3 [Concomitant]
     Active Substance: CHOLECALCIFEROL
  8. LEVOTHYROXINE. [Concomitant]
     Active Substance: LEVOTHYROXINE
     Indication: THYROID DISORDER
  9. OCUVITE [Concomitant]
     Active Substance: VITAMINS
     Indication: OCULAR DISCOMFORT
  10. CHLORTHALIDONE. [Concomitant]
     Active Substance: CHLORTHALIDONE
     Indication: DIURETIC THERAPY
  11. MAGNESIUM [Concomitant]
     Active Substance: MAGNESIUM
     Indication: JOINT STABILISATION
  12. ESTRACE [Concomitant]
     Active Substance: ESTRADIOL
     Indication: BLADDER DISORDER
  13. TELMISARTAN. [Concomitant]
     Active Substance: TELMISARTAN
     Indication: BLOOD PRESSURE MEASUREMENT

REACTIONS (8)
  - Oral mucosal exfoliation [Unknown]
  - Benign oesophageal neoplasm [Unknown]
  - Hypoaesthesia oral [Unknown]
  - Tongue discolouration [Not Recovered/Not Resolved]
  - Oral disorder [Unknown]
  - Off label use [Unknown]
  - Product prescribing error [Unknown]
  - Taste disorder [Not Recovered/Not Resolved]

NARRATIVE: CASE EVENT DATE: 2018
